FAERS Safety Report 20684143 (Version 2)
Quarter: 2022Q2

REPORT INFORMATION
  Report Type: Spontaneous
  Country: CA (occurrence: CA)
  Receive Date: 20220407
  Receipt Date: 20220412
  Transmission Date: 20220721
  Serious: Yes (Other)
  Sender: FDA-Public Use
  Company Number: CA-MYLANLABS-2022M1025219

PATIENT
  Sex: Female

DRUGS (6)
  1. SYNTHROID [Suspect]
     Active Substance: LEVOTHYROXINE SODIUM
     Indication: Product used for unknown indication
     Dosage: UNK
     Route: 065
  2. ACTEMRA [Suspect]
     Active Substance: TOCILIZUMAB
     Indication: Rheumatoid arthritis
     Dosage: 162 MILLIGRAM, QW (1 EVERY 1 WEEKS)
     Route: 058
  3. BILASTINE [Concomitant]
     Active Substance: BILASTINE
     Dosage: UNK
  4. INDOMETHACIN [Concomitant]
     Active Substance: INDOMETHACIN
     Dosage: UNK
  5. LANSOPRAZOLE [Concomitant]
     Active Substance: LANSOPRAZOLE
     Dosage: UNK
  6. LEVOTHYROXINE SODIUM [Concomitant]
     Active Substance: LEVOTHYROXINE SODIUM
     Dosage: UNK
     Route: 065

REACTIONS (10)
  - Suicidal ideation [Unknown]
  - Alopecia [Unknown]
  - Confusional state [Unknown]
  - Eye swelling [Unknown]
  - Hyperhidrosis [Unknown]
  - Paraesthesia [Unknown]
  - Hypotension [Unknown]
  - Swelling face [Unknown]
  - Fatigue [Unknown]
  - Anxiety [Unknown]
